FAERS Safety Report 8938560 (Version 1)
Quarter: 2012Q4

REPORT INFORMATION
  Report Type: 
  Country: US (occurrence: US)
  Receive Date: 20121203
  Receipt Date: 20121203
  Transmission Date: 20130627
  Serious: Yes (Other)
  Sender: FDA-Public Use
  Company Number: PHEH2012US023270

PATIENT
  Age: 59 Year
  Sex: Female
  Weight: 58.5 kg

DRUGS (2)
  1. EXJADE [Suspect]
     Indication: IRON OVERLOAD
     Dosage: 1125 mg, daily
     Route: 048
     Dates: start: 20120828, end: 20121120
  2. EXJADE [Suspect]
     Dosage: UNK

REACTIONS (4)
  - Oliguria [Recovering/Resolving]
  - Decreased appetite [Recovering/Resolving]
  - Nausea [Recovering/Resolving]
  - Fatigue [Recovering/Resolving]
